FAERS Safety Report 9324238 (Version 1)
Quarter: 2013Q2

REPORT INFORMATION
  Report Type: Spontaneous
  Country: DZ (occurrence: DZ)
  Receive Date: 20130603
  Receipt Date: 20130603
  Transmission Date: 20140414
  Serious: Yes (Life-Threatening)
  Sender: FDA-Public Use
  Company Number: DZ-JNJFOC-20130522962

PATIENT
  Age: 22 Year
  Sex: Female

DRUGS (2)
  1. CETIRIZINE HYDROCHLORIDE [Suspect]
     Route: 065
  2. CETIRIZINE HYDROCHLORIDE [Suspect]
     Indication: HYPERSENSITIVITY
     Dosage: 10 DROPS
     Route: 065

REACTIONS (4)
  - Extrapyramidal disorder [Recovered/Resolved]
  - Tachycardia [Recovered/Resolved]
  - Muscle spasms [Recovered/Resolved]
  - Dyspnoea [Recovered/Resolved]
